FAERS Safety Report 6637252-3 (Version None)
Quarter: 2010Q1

REPORT INFORMATION
  Report Type: 
  Country: None (occurrence: None)
  Receive Date: 20100316
  Receipt Date: 20100225
  Transmission Date: 20100710
  Serious: No
  Sender: FDA-Public Use
  Company Number: US-ABBOTT-10P-163-0629689-00

PATIENT
  Sex: Female
  Weight: 74.91 kg

DRUGS (2)
  1. TRILIPIX [Suspect]
     Indication: BLOOD CHOLESTEROL INCREASED
     Dosage: EVERY NIGHT
     Dates: start: 20100114, end: 20100221
  2. TRIAMTERENE [Concomitant]
     Indication: HYPERTENSION

REACTIONS (1)
  - RASH [None]
